FAERS Safety Report 5330206-9 (Version None)
Quarter: 2007Q2

REPORT INFORMATION
  Report Type: 
  Country: None (occurrence: None)
  Receive Date: 20070521
  Receipt Date: 20070507
  Transmission Date: 20071010
  Serious: Yes (Other)
  Sender: FDA-Public Use
  Company Number: US-ELI_LILLY_AND_COMPANY-US200705003963

PATIENT
  Age: 8 Year
  Sex: Female
  Weight: 24.5 kg

DRUGS (6)
  1. STRATTERA [Suspect]
     Indication: ATTENTION DEFICIT/HYPERACTIVITY DISORDER
     Dosage: 36 MG, EACH EVENING
     Dates: start: 20040117, end: 20070315
  2. TRILEPTAL [Concomitant]
     Dosage: 225 MG, 2/D
  3. TRILEPTAL [Concomitant]
     Dosage: 225 MG, EACH MORNING
  4. TRILEPTAL [Concomitant]
     Dosage: 150 MG, EACH EVENING
  5. CLONIDINE [Concomitant]
     Dosage: 0.05 MG, EACH EVENING
  6. MULTI-VITAMIN [Concomitant]

REACTIONS (8)
  - ANXIETY [None]
  - CHEST PAIN [None]
  - DRUG INEFFECTIVE [None]
  - DYSGRAPHIA [None]
  - MENTAL IMPAIRMENT [None]
  - SLEEP APNOEA SYNDROME [None]
  - SYNCOPE [None]
  - TACHYCARDIA [None]
